FAERS Safety Report 7279236-0 (Version None)
Quarter: 2011Q1

REPORT INFORMATION
  Report Type: 
  Country: None (occurrence: None)
  Receive Date: 20110207
  Receipt Date: 20110201
  Transmission Date: 20110831
  Serious: Yes (Other)
  Sender: FDA-Public Use
  Company Number: US-PFIZER INC-2011023633

PATIENT
  Sex: Female

DRUGS (1)
  1. ZITHROMAX [Suspect]
     Dosage: 250 MG, 1X/DAY
     Route: 048
     Dates: start: 20110101, end: 20110101

REACTIONS (9)
  - FEELING ABNORMAL [None]
  - ANXIETY [None]
  - INSOMNIA [None]
  - NEGATIVE THOUGHTS [None]
  - DEPRESSION [None]
  - ABASIA [None]
  - HEADACHE [None]
  - ABNORMAL BEHAVIOUR [None]
  - ACTIVITIES OF DAILY LIVING IMPAIRED [None]
